FAERS Safety Report 4444676-1 (Version None)
Quarter: 2004Q3

REPORT INFORMATION
  Report Type: 
  Country: None (occurrence: None)
  Receive Date: 20040907
  Receipt Date: 20040823
  Transmission Date: 20050211
  Serious: Yes (Disabling)
  Sender: FDA-Public Use
  Company Number: 2004SE02145

PATIENT
  Age: 65 Year
  Sex: Male

DRUGS (1)
  1. PLENDIL [Suspect]
     Indication: HYPERTENSION
     Dosage: 10 MG DAILY PO
     Route: 048
     Dates: start: 20000611, end: 20040305

REACTIONS (4)
  - BREAST PAIN [None]
  - GYNAECOMASTIA [None]
  - PRURITUS [None]
  - SKIN IRRITATION [None]
